FAERS Safety Report 9256416 (Version 1)
Quarter: 2013Q2

REPORT INFORMATION
  Report Type: Spontaneous
  Country: US (occurrence: US)
  Receive Date: 20130426
  Receipt Date: 20130426
  Transmission Date: 20140414
  Serious: Yes (Life-Threatening, Hospitalization, Other)
  Sender: FDA-Public Use
  Company Number: US-ROCHE-1217776

PATIENT
  Age: 68 Year
  Sex: Female
  Weight: 59.02 kg

DRUGS (5)
  1. XELODA [Suspect]
     Indication: COLORECTAL CANCER STAGE II
     Route: 065
     Dates: start: 20121103
  2. XELODA [Suspect]
     Route: 065
     Dates: start: 20130311, end: 20130324
  3. XELODA [Suspect]
     Route: 065
     Dates: start: 20130401, end: 20130404
  4. COMPAZINE [Concomitant]
     Route: 048
     Dates: start: 20130311
  5. MYCELEX TROCHES [Concomitant]
     Indication: CANDIDA INFECTION
     Route: 048
     Dates: start: 20130321

REACTIONS (8)
  - Haemorrhage [Unknown]
  - Stomatitis [Not Recovered/Not Resolved]
  - Palmar-plantar erythrodysaesthesia syndrome [Unknown]
  - Diarrhoea haemorrhagic [Recovered/Resolved]
  - Weight decreased [Unknown]
  - Haematemesis [Recovered/Resolved]
  - Renal failure [Not Recovered/Not Resolved]
  - Candida infection [Recovered/Resolved]
